FAERS Safety Report 10062021 (Version 1)
Quarter: 2014Q2

REPORT INFORMATION
  Report Type: Spontaneous
  Country: US (occurrence: None)
  Receive Date: 20140404
  Receipt Date: 20140404
  Transmission Date: 20141212
  Serious: Yes (Hospitalization)
  Sender: FDA-Public Use
  Company Number: None

PATIENT
  Age: 3 Year
  Sex: Female
  Weight: 17.2 kg

DRUGS (6)
  1. VALPROIC ACID [Suspect]
     Indication: CONVULSION
  2. FELBAMATE [Concomitant]
  3. GLYCERIN SUPPOSITORY [Concomitant]
  4. ONDANSETRON [Concomitant]
  5. MIRALAX [Concomitant]
  6. TOPIRAMATE [Concomitant]

REACTIONS (2)
  - Thrombocytopenia [None]
  - Drug level increased [None]
